FAERS Safety Report 7643811-1 (Version None)
Quarter: 2011Q3

REPORT INFORMATION
  Report Type: 
  Country: None (occurrence: None)
  Receive Date: 20110729
  Receipt Date: 20110719
  Transmission Date: 20111222
  Serious: Yes (Other)
  Sender: FDA-Public Use
  Company Number: FR-GENZYME-THYM-1002626

PATIENT
  Age: 44 Year
  Sex: Male

DRUGS (5)
  1. CORTICOSTEROID NOS [Concomitant]
     Indication: IMMUNOSUPPRESSION
     Route: 065
  2. TACROLIMUS [Concomitant]
     Indication: IMMUNOSUPPRESSION
     Route: 065
  3. MYCOPHENOLATE MOFETIL [Concomitant]
     Indication: IMMUNOSUPPRESSION
     Route: 065
  4. THYMOGLOBULIN [Suspect]
     Indication: PROPHYLAXIS AGAINST TRANSPLANT REJECTION
     Route: 042
  5. IMMUNOGLOBULINS [Concomitant]
     Indication: IMMUNOSUPPRESSION
     Route: 042

REACTIONS (3)
  - BLEEDING TIME PROLONGED [None]
  - GRAFT LOSS [None]
  - TRANSPLANT REJECTION [None]
